FAERS Safety Report 16347638 (Version 1)
Quarter: 2019Q2

REPORT INFORMATION
  Report Type: Spontaneous
  Country: DK (occurrence: DK)
  Receive Date: 20190523
  Receipt Date: 20190523
  Transmission Date: 20190711
  Serious: Yes (Life-Threatening, Hospitalization)
  Sender: FDA-Public Use
  Company Number: DK-MYLANLABS-2019M1047048

PATIENT
  Sex: Male

DRUGS (3)
  1. CITALOPRAM [Suspect]
     Active Substance: CITALOPRAM HYDROBROMIDE
     Indication: DEPRESSION
     Dosage: 20 MILLIGRAM, QD (STYRKE: 20 MG)
     Route: 064
     Dates: start: 20171017
  2. OLANZAPINE TEVA [Suspect]
     Active Substance: OLANZAPINE
     Indication: MENTAL DISORDER
     Dosage: 5 MILLIGRAM, PRN (STYRKE: 2.5 MG)
     Route: 064
     Dates: start: 20180308
  3. CITALOPRAM [Suspect]
     Active Substance: CITALOPRAM HYDROBROMIDE
     Indication: DEPRESSION
     Dosage: 20 MILLIGRAM, QD (STYRKE: 20 MG)
     Route: 064
     Dates: start: 20170427, end: 20171017

REACTIONS (7)
  - Brain neoplasm [Not Recovered/Not Resolved]
  - IIIrd nerve paresis [Not Recovered/Not Resolved]
  - Vomiting [Not Recovered/Not Resolved]
  - Neonatal disorder [Not Recovered/Not Resolved]
  - Cerebral cyst [Not Recovered/Not Resolved]
  - Hydrocephalus [Not Recovered/Not Resolved]
  - Foetal exposure during pregnancy [Recovered/Resolved]

NARRATIVE: CASE EVENT DATE: 201804
